FAERS Safety Report 6690310-X (Version None)
Quarter: 2010Q2

REPORT INFORMATION
  Report Type: 
  Country: None (occurrence: None)
  Receive Date: 20100421
  Receipt Date: 20100330
  Transmission Date: 20101027
  Serious: Yes (Hospitalization)
  Sender: FDA-Public Use
  Company Number: PHHO2010US05855

PATIENT
  Sex: Male
  Weight: 109.48 kg

DRUGS (1)
  1. AFINITOR [Suspect]
     Indication: METASTATIC RENAL CELL CARCINOMA
     Dosage: 10 MG, ONCE/SINGLE
     Route: 048
     Dates: start: 20100201, end: 20100404

REACTIONS (4)
  - CEREBROVASCULAR ACCIDENT [None]
  - EMBOLIC CEREBRAL INFARCTION [None]
  - IMMOBILISATION PROLONGED [None]
  - MUSCULAR WEAKNESS [None]
